FAERS Safety Report 4735883-9 (Version None)
Quarter: 2005Q3

REPORT INFORMATION
  Report Type: 
  Country: None (occurrence: None)
  Receive Date: 20050804
  Receipt Date: 20050804
  Transmission Date: 20060218
  Serious: Yes (Other)
  Sender: FDA-Public Use
  Company Number: None

PATIENT
  Age: 24 Year
  Sex: Female
  Weight: 70.3075 kg

DRUGS (3)
  1. KETEK [Suspect]
     Indication: ACUTE SINUSITIS
     Dosage: 500MG QD ORAL
     Route: 048
     Dates: start: 20050101, end: 20050105
  2. NASACORT [Concomitant]
  3. IBUPROFEN [Concomitant]

REACTIONS (1)
  - BLINDNESS TRANSIENT [None]
